FAERS Safety Report 25222114 (Version 4)
Quarter: 2025Q2

REPORT INFORMATION
  Report Type: Spontaneous
  Country: ES (occurrence: ES)
  Receive Date: 20250421
  Receipt Date: 20250529
  Transmission Date: 20250716
  Serious: Yes (Other)
  Sender: MYLAN
  Company Number: None

PATIENT
  Age: 40 Year
  Sex: Female

DRUGS (40)
  1. CANDESARTAN [Suspect]
     Active Substance: CANDESARTAN
     Indication: Migraine
     Dosage: 16 MILLIGRAM, QD (24 HOURS)
     Dates: start: 20220615, end: 20230109
  2. CANDESARTAN [Suspect]
     Active Substance: CANDESARTAN
     Dosage: 16 MILLIGRAM, QD (24 HOURS)
     Route: 048
     Dates: start: 20220615, end: 20230109
  3. CANDESARTAN [Suspect]
     Active Substance: CANDESARTAN
     Dosage: 16 MILLIGRAM, QD (24 HOURS)
     Route: 048
     Dates: start: 20220615, end: 20230109
  4. CANDESARTAN [Suspect]
     Active Substance: CANDESARTAN
     Dosage: 16 MILLIGRAM, QD (24 HOURS)
     Dates: start: 20220615, end: 20230109
  5. PAROXETINE [Suspect]
     Active Substance: PAROXETINE
     Indication: Migraine
     Dosage: 20 MILLIGRAM, QD (24 HOURS)
     Dates: start: 20200315, end: 20230313
  6. PAROXETINE [Suspect]
     Active Substance: PAROXETINE
     Dosage: 20 MILLIGRAM, QD (24 HOURS)
     Route: 048
     Dates: start: 20200315, end: 20230313
  7. PAROXETINE [Suspect]
     Active Substance: PAROXETINE
     Dosage: 20 MILLIGRAM, QD (24 HOURS)
     Route: 048
     Dates: start: 20200315, end: 20230313
  8. PAROXETINE [Suspect]
     Active Substance: PAROXETINE
     Dosage: 20 MILLIGRAM, QD (24 HOURS)
     Dates: start: 20200315, end: 20230313
  9. ALMOTRIPTAN [Suspect]
     Active Substance: ALMOTRIPTAN
     Indication: Migraine
     Dates: start: 20200315, end: 20230313
  10. ALMOTRIPTAN [Suspect]
     Active Substance: ALMOTRIPTAN
     Route: 048
     Dates: start: 20200315, end: 20230313
  11. ALMOTRIPTAN [Suspect]
     Active Substance: ALMOTRIPTAN
     Route: 048
     Dates: start: 20200315, end: 20230313
  12. ALMOTRIPTAN [Suspect]
     Active Substance: ALMOTRIPTAN
     Dates: start: 20200315, end: 20230313
  13. AJOVY [Suspect]
     Active Substance: FREMANEZUMAB-VFRM
     Indication: Migraine
     Dosage: 675 MILLIGRAM, Q3MONTHS (INJECTABLE SOLUTION IN PRE-FILLED PEN, 1 PREFILLED PEN)
     Dates: start: 20221011, end: 20230109
  14. AJOVY [Suspect]
     Active Substance: FREMANEZUMAB-VFRM
     Dosage: 675 MILLIGRAM, Q3MONTHS (INJECTABLE SOLUTION IN PRE-FILLED PEN, 1 PREFILLED PEN)
     Route: 058
     Dates: start: 20221011, end: 20230109
  15. AJOVY [Suspect]
     Active Substance: FREMANEZUMAB-VFRM
     Dosage: 675 MILLIGRAM, Q3MONTHS (INJECTABLE SOLUTION IN PRE-FILLED PEN, 1 PREFILLED PEN)
     Route: 058
     Dates: start: 20221011, end: 20230109
  16. AJOVY [Suspect]
     Active Substance: FREMANEZUMAB-VFRM
     Dosage: 675 MILLIGRAM, Q3MONTHS (INJECTABLE SOLUTION IN PRE-FILLED PEN, 1 PREFILLED PEN)
     Dates: start: 20221011, end: 20230109
  17. TRAZODONE HYDROCHLORIDE [Suspect]
     Active Substance: TRAZODONE HYDROCHLORIDE
     Indication: Migraine
     Dosage: 100 MILLIGRAM, QD (24 HOURS)
     Dates: start: 20220615, end: 20230313
  18. TRAZODONE HYDROCHLORIDE [Suspect]
     Active Substance: TRAZODONE HYDROCHLORIDE
     Dosage: 100 MILLIGRAM, QD (24 HOURS)
     Route: 048
     Dates: start: 20220615, end: 20230313
  19. TRAZODONE HYDROCHLORIDE [Suspect]
     Active Substance: TRAZODONE HYDROCHLORIDE
     Dosage: 100 MILLIGRAM, QD (24 HOURS)
     Route: 048
     Dates: start: 20220615, end: 20230313
  20. TRAZODONE HYDROCHLORIDE [Suspect]
     Active Substance: TRAZODONE HYDROCHLORIDE
     Dosage: 100 MILLIGRAM, QD (24 HOURS)
     Dates: start: 20220615, end: 20230313
  21. AMITRIPTYLINE [Suspect]
     Active Substance: AMITRIPTYLINE
     Indication: Migraine
     Dosage: 10 MILLIGRAM, QD (24 HOURS)
     Dates: start: 20200115, end: 20230313
  22. AMITRIPTYLINE [Suspect]
     Active Substance: AMITRIPTYLINE
     Dosage: 10 MILLIGRAM, QD (24 HOURS)
     Route: 048
     Dates: start: 20200115, end: 20230313
  23. AMITRIPTYLINE [Suspect]
     Active Substance: AMITRIPTYLINE
     Dosage: 10 MILLIGRAM, QD (24 HOURS)
     Route: 048
     Dates: start: 20200115, end: 20230313
  24. AMITRIPTYLINE [Suspect]
     Active Substance: AMITRIPTYLINE
     Dosage: 10 MILLIGRAM, QD (24 HOURS)
     Dates: start: 20200115, end: 20230313
  25. CLOPIDOGREL [Suspect]
     Active Substance: CLOPIDOGREL BISULFATE
     Indication: Antiphospholipid syndrome
     Dosage: 75 MILLIGRAM, QD (24 HOURS)
     Dates: start: 20190715, end: 20230310
  26. CLOPIDOGREL [Suspect]
     Active Substance: CLOPIDOGREL BISULFATE
     Dosage: 75 MILLIGRAM, QD (24 HOURS)
     Route: 048
     Dates: start: 20190715, end: 20230310
  27. CLOPIDOGREL [Suspect]
     Active Substance: CLOPIDOGREL BISULFATE
     Dosage: 75 MILLIGRAM, QD (24 HOURS)
     Route: 048
     Dates: start: 20190715, end: 20230310
  28. CLOPIDOGREL [Suspect]
     Active Substance: CLOPIDOGREL BISULFATE
     Dosage: 75 MILLIGRAM, QD (24 HOURS)
     Dates: start: 20190715, end: 20230310
  29. BOTULINUM TOXIN TYPE A [Suspect]
     Active Substance: BOTULINUM TOXIN TYPE A
     Indication: Migraine
     Dosage: 195 INTERNATIONAL UNIT, Q3MONTHS
     Dates: start: 20211025, end: 20211025
  30. BOTULINUM TOXIN TYPE A [Suspect]
     Active Substance: BOTULINUM TOXIN TYPE A
     Dosage: 195 INTERNATIONAL UNIT, Q3MONTHS
     Dates: start: 20211025, end: 20211025
  31. BOTULINUM TOXIN TYPE A [Suspect]
     Active Substance: BOTULINUM TOXIN TYPE A
     Dosage: 195 INTERNATIONAL UNIT, Q3MONTHS
     Route: 058
     Dates: start: 20211025, end: 20211025
  32. BOTULINUM TOXIN TYPE A [Suspect]
     Active Substance: BOTULINUM TOXIN TYPE A
     Dosage: 195 INTERNATIONAL UNIT, Q3MONTHS
     Route: 058
     Dates: start: 20211025, end: 20211025
  33. BOTULINUM TOXIN TYPE A [Suspect]
     Active Substance: BOTULINUM TOXIN TYPE A
     Dates: start: 20230109, end: 20230109
  34. BOTULINUM TOXIN TYPE A [Suspect]
     Active Substance: BOTULINUM TOXIN TYPE A
     Dates: start: 20230109, end: 20230109
  35. BOTULINUM TOXIN TYPE A [Suspect]
     Active Substance: BOTULINUM TOXIN TYPE A
     Route: 058
     Dates: start: 20230109, end: 20230109
  36. BOTULINUM TOXIN TYPE A [Suspect]
     Active Substance: BOTULINUM TOXIN TYPE A
     Route: 058
     Dates: start: 20230109, end: 20230109
  37. NIMODIPINE [Suspect]
     Active Substance: NIMODIPINE
     Indication: Headache
     Dosage: 30 MILLIGRAM, Q8H
     Dates: start: 20120715, end: 20230310
  38. NIMODIPINE [Suspect]
     Active Substance: NIMODIPINE
     Dosage: 30 MILLIGRAM, Q8H
     Route: 048
     Dates: start: 20120715, end: 20230310
  39. NIMODIPINE [Suspect]
     Active Substance: NIMODIPINE
     Dosage: 30 MILLIGRAM, Q8H
     Route: 048
     Dates: start: 20120715, end: 20230310
  40. NIMODIPINE [Suspect]
     Active Substance: NIMODIPINE
     Dosage: 30 MILLIGRAM, Q8H
     Dates: start: 20120715, end: 20230310

REACTIONS (3)
  - Abortion missed [Recovered/Resolved]
  - Maternal exposure during pregnancy [Recovered/Resolved]
  - Off label use [Unknown]

NARRATIVE: CASE EVENT DATE: 20230109
